FAERS Safety Report 4533293-0 (Version None)
Quarter: 2004Q4

REPORT INFORMATION
  Report Type: 
  Country: None (occurrence: None)
  Receive Date: 20041221
  Receipt Date: 20041207
  Transmission Date: 20050328
  Serious: Yes (Other)
  Sender: FDA-Public Use
  Company Number: PHBS2004CA16446

PATIENT
  Age: 77 Year
  Sex: Male

DRUGS (4)
  1. AREDIA [Suspect]
     Indication: MULTIPLE MYELOMA
     Dosage: 80 MG, QMO
     Route: 042
  2. ASPIRIN [Concomitant]
  3. MELOXICAM [Concomitant]
  4. VITAMIN D [Concomitant]

REACTIONS (4)
  - DYSPNOEA [None]
  - INFLAMMATION [None]
  - PNEUMONITIS [None]
  - PULMONARY FIBROSIS [None]
